FAERS Safety Report 7564731-7 (Version None)
Quarter: 2011Q2

REPORT INFORMATION
  Report Type: 
  Country: None (occurrence: None)
  Receive Date: 20110622
  Receipt Date: 20101115
  Transmission Date: 20111010
  Serious: Yes (Other)
  Sender: FDA-Public Use
  Company Number: US-MYLANLABS-2010S1018465

PATIENT
  Age: 49 Year
  Sex: Female
  Weight: 68.04 kg

DRUGS (4)
  1. CLOZAPINE [Suspect]
     Indication: SCHIZOPHRENIA, PARANOID TYPE
     Route: 048
     Dates: start: 20100201, end: 20100318
  2. CLOZAPINE [Suspect]
     Route: 048
     Dates: start: 20100318, end: 20100921
  3. DEPAKOTE [Concomitant]
     Dates: start: 20100201
  4. COGENTIN [Concomitant]
     Dates: start: 20100201

REACTIONS (1)
  - GRANULOCYTOPENIA [None]
